FAERS Safety Report 19657045 (Version 1)
Quarter: 2021Q3

REPORT INFORMATION
  Report Type: Spontaneous
  Country: US (occurrence: US)
  Receive Date: 20210804
  Receipt Date: 20210804
  Transmission Date: 20211014
  Serious: No
  Sender: FDA-Public Use
  Company Number: US-BRISTOL-MYERS SQUIBB COMPANY-BMS-2021-073962

PATIENT
  Age: 68 Year
  Sex: Female

DRUGS (2)
  1. YERVOY [Suspect]
     Active Substance: IPILIMUMAB
     Indication: NEUROENDOCRINE TUMOUR
     Dosage: 65 MILLIGRAM, Q6WK
     Route: 042
     Dates: end: 20210630
  2. OPDIVO [Suspect]
     Active Substance: NIVOLUMAB
     Indication: NEUROENDOCRINE TUMOUR
     Dosage: 180 MILLIGRAM, Q2WK
     Route: 042
     Dates: end: 20210630

REACTIONS (1)
  - Intentional product use issue [Unknown]
